FAERS Safety Report 9756071 (Version 1)
Quarter: 2013Q4

REPORT INFORMATION
  Report Type: Spontaneous
  Country: FR (occurrence: FR)
  Receive Date: 20131213
  Receipt Date: 20131213
  Transmission Date: 20140711
  Serious: Yes (Hospitalization)
  Sender: FDA-Public Use
  Company Number: FR-GLAXOSMITHKLINE-B0951136A

PATIENT
  Age: 49 Year
  Sex: Female

DRUGS (3)
  1. TROBALT [Suspect]
     Indication: EPILEPSY
     Dosage: 1TAB THREE TIMES PER DAY
     Route: 048
     Dates: start: 20121212
  2. DI-HYDAN [Suspect]
     Indication: EPILEPSY
     Dosage: 100MG THREE TIMES PER DAY
     Route: 048
     Dates: start: 20121212
  3. ANTI-EPILEPTIC MEDICATION [Concomitant]
     Indication: EPILEPSY
     Dates: end: 20121212

REACTIONS (4)
  - Diarrhoea [Recovering/Resolving]
  - Vomiting [Unknown]
  - Hypokalaemia [Recovered/Resolved]
  - Colitis microscopic [Recovering/Resolving]
